FAERS Safety Report 21253729 (Version 1)
Quarter: 2022Q3

REPORT INFORMATION
  Report Type: Spontaneous
  Country: US (occurrence: US)
  Receive Date: 20220825
  Receipt Date: 20220825
  Transmission Date: 20221027
  Serious: No
  Sender: FDA-Public Use
  Company Number: US-ORGANON-O2208USA001729

PATIENT
  Age: 28 Year
  Sex: Female
  Weight: 75.283 kg

DRUGS (1)
  1. NEXPLANON [Suspect]
     Active Substance: ETONOGESTREL
     Indication: Contraception
     Dosage: 1 ROD FOR 3 YEARS IN LEFT
     Route: 059
     Dates: start: 20211002

REACTIONS (4)
  - Breast mass [Recovered/Resolved]
  - Breast pain [Recovered/Resolved]
  - Vaginal discharge [Not Recovered/Not Resolved]
  - Vaginal infection [Not Recovered/Not Resolved]

NARRATIVE: CASE EVENT DATE: 20220801
